FAERS Safety Report 13534360 (Version 1)
Quarter: 2017Q2

REPORT INFORMATION
  Report Type: Spontaneous
  Country: AT (occurrence: AT)
  Receive Date: 20170510
  Receipt Date: 20170510
  Transmission Date: 20170830
  Serious: Yes (Other)
  Sender: FDA-Public Use
  Company Number: PHHY2017AT064818

PATIENT
  Age: 64 Year
  Sex: Male

DRUGS (2)
  1. ZOLEDRONIC ACID [Suspect]
     Active Substance: ZOLEDRONIC ACID
     Indication: MALIGNANT MELANOMA
  2. ZOLEDRONIC ACID [Suspect]
     Active Substance: ZOLEDRONIC ACID
     Indication: PANCREATIC CARCINOMA
     Dosage: UNK, QMO
     Route: 065

REACTIONS (4)
  - Product use in unapproved indication [Unknown]
  - Osteonecrosis of jaw [Unknown]
  - Infection [Unknown]
  - Pain in jaw [Unknown]
